FAERS Safety Report 7523529-6 (Version None)
Quarter: 2011Q2

REPORT INFORMATION
  Report Type: 
  Country: None (occurrence: None)
  Receive Date: 20110525
  Receipt Date: 20110524
  Transmission Date: 20111010
  Serious: Yes (Death, Hospitalization)
  Sender: FDA-Public Use
  Company Number: 2011MA005757

PATIENT
  Age: 74 Year
  Sex: Female

DRUGS (2)
  1. MEXILETINE HYDROCHLORIDE [Concomitant]
  2. CARBAMAZEPINE [Suspect]
     Dates: start: 20070101

REACTIONS (6)
  - PARAESTHESIA [None]
  - DIARRHOEA [None]
  - RASH GENERALISED [None]
  - COMPLICATIONS OF TRANSPLANTED LIVER [None]
  - OEDEMA PERIPHERAL [None]
  - ERYTHEMA [None]
